FAERS Safety Report 22655559 (Version 1)
Quarter: 2023Q2

REPORT INFORMATION
  Report Type: Spontaneous
  Country: US (occurrence: US)
  Receive Date: 20230629
  Receipt Date: 20230629
  Transmission Date: 20230721
  Serious: No
  Sender: FDA-Public Use
  Company Number: US-VERTEX PHARMACEUTICALS-2023-007605

PATIENT
  Age: 36 Year
  Sex: Female
  Weight: 49 kg

DRUGS (9)
  1. TRIKAFTA [Suspect]
     Active Substance: ELEXACAFTOR\IVACAFTOR\TEZACAFTOR
     Indication: Cystic fibrosis
     Dosage: TWO ORANGE TABLETS IN THE MORNING AND ONE BLUE TABLET IN THE EVENING
     Route: 048
     Dates: start: 20230518, end: 20230604
  2. TRIKAFTA [Suspect]
     Active Substance: ELEXACAFTOR\IVACAFTOR\TEZACAFTOR
     Dosage: UNKNOWN DOSAGE REGIMEN
     Route: 048
     Dates: start: 20230620
  3. SODIUM CHLORIDE [Concomitant]
     Active Substance: SODIUM CHLORIDE
     Route: 055
  4. XOPENEX HFA [Concomitant]
     Active Substance: LEVALBUTEROL TARTRATE
  5. PULMOZYME [Concomitant]
     Active Substance: DORNASE ALFA
  6. VITAMINS [Concomitant]
     Active Substance: VITAMINS
     Dosage: 19 29-1-25 MG TABLET
  7. ALBUTEROL SULFATE [Concomitant]
     Active Substance: ALBUTEROL SULFATE
  8. ALBUTEROL [Concomitant]
     Active Substance: ALBUTEROL
  9. IRON [Concomitant]
     Active Substance: IRON

REACTIONS (5)
  - Paranasal sinus hypersecretion [Not Recovered/Not Resolved]
  - Headache [Recovered/Resolved]
  - Rash [Recovered/Resolved]
  - Rash pruritic [Recovered/Resolved]
  - Photosensitivity reaction [Unknown]

NARRATIVE: CASE EVENT DATE: 20230501
